FAERS Safety Report 22926286 (Version 2)
Quarter: 2023Q4

REPORT INFORMATION
  Report Type: Spontaneous
  Country: US (occurrence: US)
  Receive Date: 20230909
  Receipt Date: 20231115
  Transmission Date: 20240110
  Serious: Yes (Hospitalization)
  Sender: FDA-Public Use
  Company Number: US-002147023-NVSC2023US191233

PATIENT
  Age: 1 Month
  Sex: Male

DRUGS (1)
  1. ZOLGENSMA [Suspect]
     Active Substance: ONASEMNOGENE ABEPARVOVEC-XIOI
     Indication: Spinal muscular atrophy
     Dosage: ONCE/SINGLE (1.1 X 10E14 VG/KG)
     Route: 042
     Dates: start: 20230901, end: 20230901

REACTIONS (1)
  - Hypercapnia [Unknown]
